FAERS Safety Report 19612582 (Version 1)
Quarter: 2021Q3

REPORT INFORMATION
  Report Type: Spontaneous
  Country: NZ (occurrence: NZ)
  Receive Date: 20210727
  Receipt Date: 20210727
  Transmission Date: 20211014
  Serious: Yes (Other)
  Sender: FDA-Public Use
  Company Number: NZ-SUN PHARMACEUTICAL INDUSTRIES LTD-2021R1-305362

PATIENT
  Age: 81 Year
  Sex: Male

DRUGS (5)
  1. ASPIRIN. [Concomitant]
     Active Substance: ASPIRIN
     Indication: ANTICOAGULANT THERAPY
     Dosage: 100 MILLIGRAM, OD
     Route: 065
  2. OMEPRAZOLE. [Suspect]
     Active Substance: OMEPRAZOLE
     Indication: ANTICOAGULANT THERAPY
     Dosage: 20 MILLIGRAM, OD
     Route: 065
  3. IDARUCIZUMAB [Interacting]
     Active Substance: IDARUCIZUMAB
     Indication: ANTICOAGULANT THERAPY
     Dosage: 5 MILLIGRAM
     Route: 065
  4. DABIGATRAN ETEXILATE [Interacting]
     Active Substance: DABIGATRAN ETEXILATE
     Indication: ANTICOAGULANT THERAPY
     Dosage: 110 MILLIGRAM, BID
     Route: 065
  5. DILTIAZEM. [Concomitant]
     Active Substance: DILTIAZEM
     Indication: ANTICOAGULANT THERAPY
     Dosage: 360 MILLIGRAM, OD
     Route: 065

REACTIONS (3)
  - Drug interaction [Unknown]
  - Therapeutic response decreased [Unknown]
  - Cerebrovascular accident [Unknown]
